FAERS Safety Report 12053633 (Version 1)
Quarter: 2016Q1

REPORT INFORMATION
  Report Type: Report from Study
  Country: US (occurrence: US)
  Receive Date: 20160209
  Receipt Date: 20160209
  Transmission Date: 20160526
  Serious: No
  Sender: FDA-Public Use
  Company Number: US-ABBVIE-15P-163-1455624-00

PATIENT
  Age: 47 Year
  Sex: Female

DRUGS (3)
  1. HUMIRA [Suspect]
     Active Substance: ADALIMUMAB
     Route: 058
     Dates: start: 20151024
  2. HUMIRA [Suspect]
     Active Substance: ADALIMUMAB
     Indication: CROHN^S DISEASE
     Route: 058
     Dates: start: 20130102, end: 20151010
  3. IMURAN [Suspect]
     Active Substance: AZATHIOPRINE
     Indication: FISTULA
     Route: 048

REACTIONS (12)
  - Frequent bowel movements [Not Recovered/Not Resolved]
  - Vomiting [Unknown]
  - Headache [Unknown]
  - Respiratory tract congestion [Unknown]
  - Drug effect decreased [Unknown]
  - Stress at work [Unknown]
  - Fistula discharge [Not Recovered/Not Resolved]
  - Pain [Unknown]
  - Hot flush [Unknown]
  - Abdominal pain upper [Unknown]
  - Malaise [Unknown]
  - Abdominal pain [Not Recovered/Not Resolved]

NARRATIVE: CASE EVENT DATE: 2015
